FAERS Safety Report 12233934 (Version 1)
Quarter: 2016Q2

REPORT INFORMATION
  Report Type: Spontaneous
  Country: US (occurrence: None)
  Receive Date: 20160401
  Receipt Date: 20160401
  Transmission Date: 20160815
  Serious: Yes (Hospitalization, Disabling)
  Sender: FDA-Public Use
  Company Number: None

PATIENT
  Age: 27 Year
  Weight: 53.52 kg

DRUGS (1)
  1. CIPRO [Suspect]
     Active Substance: CIPROFLOXACIN HYDROCHLORIDE
     Indication: URINARY TRACT INFECTION
     Route: 048
     Dates: start: 20150306, end: 20150320

REACTIONS (4)
  - Laboratory test abnormal [None]
  - Blindness [None]
  - Angiopathy [None]
  - Endocrine disorder [None]

NARRATIVE: CASE EVENT DATE: 20150320
